FAERS Safety Report 6768861-9 (Version None)
Quarter: 2010Q2

REPORT INFORMATION
  Report Type: 
  Country: None (occurrence: None)
  Receive Date: 20100614
  Receipt Date: 20100607
  Transmission Date: 20101027
  Serious: Yes (Death, Hospitalization)
  Sender: FDA-Public Use
  Company Number: US-NOVEN-10US001323

PATIENT
  Age: 48 Year
  Sex: Male

DRUGS (18)
  1. FENTANYL [Suspect]
     Indication: PAIN
     Dosage: 200 UG/HR,  Q3DAYS
     Route: 062
  2. OXYGEN [Concomitant]
     Indication: DRUG USE FOR UNKNOWN INDICATION
  3. PULMOZYME [Concomitant]
     Indication: DRUG USE FOR UNKNOWN INDICATION
     Dosage: 2.5 MG, BID
     Route: 055
  4. IPRATROPIUM BROMIDE [Concomitant]
     Indication: DRUG USE FOR UNKNOWN INDICATION
     Dosage: 2 PUFFS, Q 6HR.
     Route: 055
  5. ALBUTEROL SULFATE [Concomitant]
     Dosage: 2 PUFFS Q6HR
  6. DIAZEPAM [Concomitant]
     Indication: DRUG USE FOR UNKNOWN INDICATION
     Dosage: 10 MG, QID
  7. VITAMINS A, D, E AND K [Concomitant]
     Indication: DRUG USE FOR UNKNOWN INDICATION
     Dosage: 1 TABLET, QD
  8. PANCRELIPASE [Concomitant]
     Indication: DRUG USE FOR UNKNOWN INDICATION
     Dosage: 4 CAPSULES WITH EACH MEAL
     Route: 048
  9. TAMSULOSIN HYDROCHLORIDE [Concomitant]
     Indication: DRUG USE FOR UNKNOWN INDICATION
     Dosage: 0.8 MG, QD
  10. FINASTERIDE [Concomitant]
     Indication: DRUG USE FOR UNKNOWN INDICATION
     Dosage: 5 MG, BEDTIME
  11. METOCLOPRAMIDE [Concomitant]
     Dosage: 10 MG, QD
  12. PANTOPRAZOLE [Concomitant]
     Indication: DRUG USE FOR UNKNOWN INDICATION
     Dosage: 40 MG, QD
  13. VENLAFAXINE [Concomitant]
     Indication: DRUG USE FOR UNKNOWN INDICATION
     Dosage: 300 MG, QD
  14. AZITHROMYCIN [Concomitant]
     Indication: DRUG USE FOR UNKNOWN INDICATION
     Dosage: 250 MG, 3/WK
  15. PSYLLIUM [Concomitant]
     Dosage: 6 G,  ONE PACKET DAILY
  16. METHADONE [Concomitant]
     Indication: PAIN
     Dosage: 120 MG, TID
     Route: 048
  17. OXYCODONE [Concomitant]
     Indication: PAIN
     Dosage: 80 MG, TID
     Route: 048
  18. MORPHINE SULFATE [Concomitant]
     Indication: PAIN
     Dosage: 60 MG, Q 2HR. AS NEEDED
     Route: 048

REACTIONS (4)
  - CYSTIC FIBROSIS LUNG [None]
  - LUNG INFECTION PSEUDOMONAL [None]
  - PAIN [None]
  - PNEUMONIA STAPHYLOCOCCAL [None]
